FAERS Safety Report 9682842 (Version 3)
Quarter: 2014Q2

REPORT INFORMATION
  Report Type: Spontaneous
  Country: CN (occurrence: CN)
  Receive Date: 20131112
  Receipt Date: 20140516
  Transmission Date: 20141212
  Serious: Yes (Hospitalization)
  Sender: FDA-Public Use
  Company Number: PHHY2013CN128624

PATIENT
  Age: 60 Year
  Sex: Female

DRUGS (1)
  1. ACLASTA [Suspect]
     Dosage: 1 DF, QD
     Route: 042
     Dates: start: 20131108, end: 20131108

REACTIONS (5)
  - Purpura [Recovered/Resolved]
  - Rash [Recovered/Resolved]
  - Joint swelling [Recovering/Resolving]
  - Erythema [Recovering/Resolving]
  - Osteoarthritis [Recovered/Resolved]
